FAERS Safety Report 8314455-3 (Version None)
Quarter: 2012Q2

REPORT INFORMATION
  Report Type: 
  Country: None (occurrence: None)
  Receive Date: 20120426
  Receipt Date: 20120423
  Transmission Date: 20120825
  Serious: Yes (Hospitalization)
  Sender: FDA-Public Use
  Company Number: US-PFIZER INC-2012100451

PATIENT
  Sex: Female
  Weight: 41.723 kg

DRUGS (5)
  1. EMBEDA [Suspect]
     Indication: MIGRAINE
     Dosage: UNK, 1X/DAY
     Route: 048
     Dates: start: 20090101, end: 20090101
  2. EMBEDA [Suspect]
     Indication: MYOSITIS
  3. EMBEDA [Suspect]
     Indication: BACK PAIN
  4. EMBEDA [Suspect]
     Indication: PAIN
  5. ZOLOFT [Concomitant]
     Indication: DEPRESSION
     Dosage: UNK

REACTIONS (5)
  - MYOSITIS [None]
  - MIGRAINE [None]
  - MUSCULOSKELETAL STIFFNESS [None]
  - MYALGIA [None]
  - LOWER LIMB FRACTURE [None]
